FAERS Safety Report 15715338 (Version 1)
Quarter: 2018Q4

REPORT INFORMATION
  Report Type: Spontaneous
  Country: US (occurrence: US)
  Receive Date: 20181212
  Receipt Date: 20181212
  Transmission Date: 20190205
  Serious: No
  Sender: FDA-Public Use
  Company Number: None

PATIENT
  Age: 69 Year
  Sex: Female
  Weight: 68.4 kg

DRUGS (1)
  1. XARELTO [Suspect]
     Active Substance: RIVAROXABAN
     Indication: COAGULOPATHY
     Dosage: ?          QUANTITY:1 TABLET(S);?
     Route: 048
     Dates: start: 20160301, end: 20180118

REACTIONS (7)
  - Amnesia [None]
  - Muscular weakness [None]
  - Balance disorder [None]
  - Anger [None]
  - Restless legs syndrome [None]
  - Alopecia [None]
  - Personality disorder [None]

NARRATIVE: CASE EVENT DATE: 20160501
